FAERS Safety Report 6727782-8 (Version None)
Quarter: 2010Q2

REPORT INFORMATION
  Report Type: 
  Country: None (occurrence: None)
  Receive Date: 20100512
  Receipt Date: 20100430
  Transmission Date: 20101027
  Serious: Yes (Hospitalization)
  Sender: FDA-Public Use
  Company Number: 2008-00695

PATIENT
  Age: 61 Year
  Weight: 74 kg

DRUGS (8)
  1. VELCADE [Suspect]
     Indication: MULTIPLE MYELOMA
     Dosage: 1.30 MG/M2; INTRAVENOUS
     Route: 042
     Dates: start: 20080201, end: 20080211
  2. ADRIAMYCIN PFS [Suspect]
     Indication: MULTIPLE MYELOMA
     Dosage: 9.00 MG/M2; INTRAVENOUS
     Route: 042
     Dates: start: 20080201, end: 20080204
  3. DEXAMETHASONE TAB [Suspect]
     Indication: MULTIPLE MYELOMA
     Dosage: 40.00 MG, ORAL
     Route: 048
     Dates: start: 20080201, end: 20080212
  4. SULFAMETHOXAZOLE AND TRIMETHOPRIM [Suspect]
     Indication: DRUG USE FOR UNKNOWN INDICATION
     Dosage: 960.0 MG, ORAL
     Route: 048
     Dates: start: 20080201, end: 20080214
  5. ACYCLOVIR [Suspect]
     Indication: DRUG USE FOR UNKNOWN INDICATION
     Dosage: 400.00 MG, ORAL
     Route: 048
     Dates: start: 20080201, end: 20080214
  6. LOSARTAN POTASSIUM [Concomitant]
  7. BISOPROLOL [Concomitant]
  8. LERCANIDIPINE [Concomitant]

REACTIONS (3)
  - ASTHENIA [None]
  - FLUID INTAKE REDUCED [None]
  - GENERAL PHYSICAL HEALTH DETERIORATION [None]
